FAERS Safety Report 13929797 (Version 1)
Quarter: 2017Q3

REPORT INFORMATION
  Report Type: Not Available
  Country: None (occurrence: US)
  Receive Date: 20170901
  Receipt Date: 20170901
  Transmission Date: 20171127
  Serious: No
  Sender: FDA-Public Use
  Company Number: US-AKORN-60270

PATIENT
  Age: 79 Year
  Sex: Female

DRUGS (1)
  1. VANCOMYCIN HYDROCHLORIDE, 125 MG, USP [Suspect]
     Active Substance: VANCOMYCIN HYDROCHLORIDE

REACTIONS (8)
  - Peripheral swelling [Not Recovered/Not Resolved]
  - Rash [None]
  - Nausea [None]
  - Pruritus [Recovered/Resolved]
  - Abdominal pain [None]
  - Oesophageal pain [None]
  - Back pain [Not Recovered/Not Resolved]
  - Oropharyngeal pain [Recovered/Resolved]
